FAERS Safety Report 12046841 (Version 1)
Quarter: 2016Q1

REPORT INFORMATION
  Report Type: Report from Study
  Country: US (occurrence: US)
  Receive Date: 20160208
  Receipt Date: 20160208
  Transmission Date: 20160526
  Serious: No
  Sender: FDA-Public Use
  Company Number: US-ABBVIE-15P-163-1371231-00

PATIENT
  Sex: Female

DRUGS (1)
  1. HUMIRA [Suspect]
     Active Substance: ADALIMUMAB
     Indication: PSORIASIS
     Route: 065

REACTIONS (8)
  - Flatulence [Unknown]
  - Psoriasis [Not Recovered/Not Resolved]
  - Helicobacter infection [Not Recovered/Not Resolved]
  - Feeling abnormal [Unknown]
  - Balance disorder [Unknown]
  - Bronchitis [Unknown]
  - Nasopharyngitis [Unknown]
  - Abdominal tenderness [Unknown]
